FAERS Safety Report 12405791 (Version 1)
Quarter: 2016Q2

REPORT INFORMATION
  Report Type: Other
  Country: IN (occurrence: IN)
  Receive Date: 20160526
  Receipt Date: 20160526
  Transmission Date: 20160815
  Serious: Yes (Death)
  Sender: FDA-Public Use
  Company Number: IN-DEXPHARM-20161105

PATIENT
  Age: 38 Year
  Sex: Male

DRUGS (2)
  1. DICLOFENAC [Suspect]
     Active Substance: DICLOFENAC
     Indication: PAIN
  2. PARACETAMOL [Suspect]
     Active Substance: ACETAMINOPHEN
     Indication: PAIN

REACTIONS (4)
  - Focal segmental glomerulosclerosis [Fatal]
  - Hypertension [Fatal]
  - Renal cell carcinoma [Fatal]
  - Drug abuse [Fatal]
